FAERS Safety Report 21727272 (Version 1)
Quarter: 2022Q4

REPORT INFORMATION
  Report Type: Spontaneous
  Country: PT (occurrence: PT)
  Receive Date: 20221214
  Receipt Date: 20221214
  Transmission Date: 20230113
  Serious: Yes (Other)
  Sender: FDA-Public Use
  Company Number: None

PATIENT
  Age: 66 Year
  Sex: Female

DRUGS (5)
  1. TEMOZOLOMIDE [Suspect]
     Active Substance: TEMOZOLOMIDE
     Indication: Glioblastoma
     Dosage: 2 CAPSULES/DAY, ON AN EMPTY STOMACH
     Dates: start: 20220802, end: 20220812
  2. LISINOPRIL [Concomitant]
     Active Substance: LISINOPRIL
  3. LEVETIRACETAM [Concomitant]
     Active Substance: LEVETIRACETAM
     Dates: start: 20220708
  4. DECADRON [Concomitant]
     Active Substance: DEXAMETHASONE
  5. TEMOZOLOMIDE [Suspect]
     Active Substance: TEMOZOLOMIDE
     Indication: Glioblastoma
     Dosage: 1 CAPSULE/DAY, ON AN EMPTY STOMACH
     Dates: start: 20220802, end: 20220812

REACTIONS (2)
  - Hepatic function abnormal [Recovered/Resolved]
  - Transaminases increased [Recovered/Resolved]

NARRATIVE: CASE EVENT DATE: 20220811
